FAERS Safety Report 5476994-2 (Version None)
Quarter: 2007Q3

REPORT INFORMATION
  Report Type: 
  Country: None (occurrence: None)
  Receive Date: 20070831
  Receipt Date: 20070723
  Transmission Date: 20080115
  Serious: No
  Sender: FDA-Public Use
  Company Number: PHEH2007US08278

PATIENT
  Age: 18 Year
  Sex: Female

DRUGS (1)
  1. EXJADE [Suspect]
     Indication: IRON OVERLOAD
     Dosage: 500 MG, QD, ORAL
     Route: 048
     Dates: start: 20060601

REACTIONS (4)
  - CHROMATURIA [None]
  - FAECES DISCOLOURED [None]
  - RASH [None]
  - URINE ODOUR ABNORMAL [None]
